FAERS Safety Report 23950616 (Version 3)
Quarter: 2025Q1

REPORT INFORMATION
  Report Type: Spontaneous
  Country: DE (occurrence: DE)
  Receive Date: 20240607
  Receipt Date: 20250109
  Transmission Date: 20250408
  Serious: Yes (Other)
  Sender: RANBAXY
  Company Number: DE-SUN PHARMACEUTICAL INDUSTRIES LTD-2024RR-450438

PATIENT
  Age: 26 Year
  Sex: Female

DRUGS (5)
  1. GANIRELIX [Suspect]
     Active Substance: GANIRELIX
     Indication: Assisted reproductive technology
     Route: 065
  2. GONAL-F [Suspect]
     Active Substance: FOLLITROPIN
     Indication: Assisted reproductive technology
     Route: 065
  3. GONAL-F [Suspect]
     Active Substance: FOLLITROPIN
     Route: 065
  4. GONAL-F [Suspect]
     Active Substance: FOLLITROPIN
     Route: 065
  5. CHORIOGONADOTROPIN ALFA [Suspect]
     Active Substance: CHORIOGONADOTROPIN ALFA
     Indication: Assisted reproductive technology
     Route: 065

REACTIONS (1)
  - Ovarian hyperstimulation syndrome [Recovered/Resolved]

NARRATIVE: CASE EVENT DATE: 20240208
